FAERS Safety Report 10691684 (Version 1)
Quarter: 2015Q1

REPORT INFORMATION
  Report Type: Spontaneous
  Country: NO (occurrence: NO)
  Receive Date: 20150105
  Receipt Date: 20150105
  Transmission Date: 20150720
  Serious: Yes (Life-Threatening, Other)
  Sender: FDA-Public Use
  Company Number: NO-GLAXOSMITHKLINE-NO2014040712

PATIENT
  Age: 45 Year
  Sex: Female
  Weight: 120 kg

DRUGS (5)
  1. PROPOFOL. [Suspect]
     Active Substance: PROPOFOL
     Indication: STUPOR
     Dosage: 240 MG, SINGLE
     Route: 042
     Dates: start: 20141215, end: 20141215
  2. ULTIVA [Suspect]
     Active Substance: REMIFENTANIL HYDROCHLORIDE
     Indication: STUPOR
     Dosage: 75 ?G, SINGLE
     Route: 042
     Dates: start: 20141215, end: 20141215
  3. CURACIT [Suspect]
     Active Substance: SUCCINYLCHOLINE CHLORIDE
     Indication: STUPOR
     Dosage: 100 MG, SINGLE
     Route: 042
     Dates: start: 20141215, end: 20141215
  4. METRONIDAZOLE. [Suspect]
     Active Substance: METRONIDAZOLE
     Indication: ANTIBIOTIC PROPHYLAXIS
     Dosage: 1.5 G, SINGLE
     Route: 042
     Dates: start: 20141215, end: 20141215
  5. ZINACEF [Suspect]
     Active Substance: CEFUROXIME SODIUM
     Indication: ANTIBIOTIC PROPHYLAXIS
     Dosage: 1.5 G, SINGLE
     Route: 042
     Dates: start: 20141215, end: 20141215

REACTIONS (2)
  - Bronchospasm [Recovered/Resolved]
  - Hypoxia [Recovered/Resolved]

NARRATIVE: CASE EVENT DATE: 20141215
